FAERS Safety Report 8811777 (Version 2)
Quarter: 2013Q1

REPORT INFORMATION
  Report Type: Spontaneous
  Country: US (occurrence: US)
  Receive Date: 20120927
  Receipt Date: 20130315
  Transmission Date: 20140127
  Serious: Yes (Hospitalization, Disabling)
  Sender: FDA-Public Use
  Company Number: US-BAYER-2012-099105

PATIENT
  Age: 26 Year
  Sex: Female
  Weight: 74.83 kg

DRUGS (23)
  1. YASMIN [Suspect]
     Indication: CONTRACEPTION
     Dosage: UNK
     Dates: start: 20070424, end: 200906
  2. YASMIN [Suspect]
     Indication: MENSTRUATION IRREGULAR
     Dosage: UNK
     Dates: start: 200911, end: 200911
  3. YASMIN [Suspect]
     Indication: POLYCYSTIC OVARIES
  4. OCELLA [Suspect]
     Indication: CONTRACEPTION
     Dosage: UNK
     Dates: start: 20090610, end: 200907
  5. OCELLA [Suspect]
     Indication: MENSTRUATION IRREGULAR
     Dosage: UNK
     Dates: start: 200911, end: 201110
  6. ZITHROMAX [Concomitant]
     Indication: SINUSITIS
     Dosage: 1 TAB DAILY
     Dates: start: 20111005
  7. CHERATUSSIN SYRUP [Concomitant]
     Indication: SINUSITIS
     Dosage: UNK
     Dates: start: 20111005
  8. PROMETHAZIN [Concomitant]
     Dosage: UNK
     Dates: start: 20111025
  9. PREDNISONE [Concomitant]
     Dosage: 20 MG, UNK
     Dates: start: 20111017, end: 20111023
  10. AVELOX [Concomitant]
     Indication: SINUSITIS
     Dosage: 400 MG, UNK
     Dates: start: 20111020
  11. PROPRANOLOL [Concomitant]
     Indication: HYPERTENSION
     Dosage: 60 MG, UNK
     Dates: start: 20111024, end: 20111026
  12. APAP W/HYDROCODONE [Concomitant]
     Dosage: UNK
     Dates: start: 20111013
  13. IMITREX [Concomitant]
     Dosage: UNK
     Dates: start: 20111028
  14. NSAID^S [Concomitant]
     Dosage: UNK UNK, PRN
  15. ASCORBIC ACID [Concomitant]
     Dosage: UNK UNK, PRN
  16. KEPPRA [Concomitant]
     Indication: CONVULSION
     Dosage: UNK
  17. DEPAKOTE ER [Concomitant]
     Indication: CONVULSION
     Dosage: UNK
  18. COLACE [Concomitant]
     Dosage: UNK
  19. PERCOCET [OXYCODONE HYDROCHLORIDE,PARACETAMOL] [Concomitant]
     Dosage: UNK
  20. ZOFRAN [Concomitant]
     Dosage: UNK
  21. ATIVAN [Concomitant]
     Dosage: UNK
  22. LORTAB [HYDROCODONE BITARTRATE,PARACETAMOL] [Concomitant]
     Dosage: UNK
  23. PHENERGAN [PROMETHAZINE HYDROCHLORIDE] [Concomitant]
     Dosage: UNK

REACTIONS (18)
  - Superior sagittal sinus thrombosis [None]
  - Transverse sinus thrombosis [None]
  - Injury [None]
  - Pain [None]
  - General physical health deterioration [None]
  - Emotional distress [None]
  - Anxiety [None]
  - Pain [None]
  - Deformity [None]
  - Headache [None]
  - Vision blurred [None]
  - Diplopia [None]
  - Hypoaesthesia [None]
  - Hemiparesis [None]
  - Stress [None]
  - Convulsion [None]
  - Off label use [None]
  - Off label use [None]
